FAERS Safety Report 6370878-3 (Version None)
Quarter: 2009Q3

REPORT INFORMATION
  Report Type: 
  Country: None (occurrence: None)
  Receive Date: 20090923
  Receipt Date: 20071105
  Transmission Date: 20100115
  Serious: Yes (Other)
  Sender: FDA-Public Use
  Company Number: US-ASTRAZENECA-2006UW22330

PATIENT
  Age: 43 Year
  Sex: Female
  Weight: 65.8 kg

DRUGS (15)
  1. SEROQUEL [Suspect]
     Indication: SCHIZOPHRENIA
     Route: 048
     Dates: start: 19980101, end: 20010101
  2. SEROQUEL [Suspect]
     Indication: DEPRESSION
     Route: 048
     Dates: start: 19980101, end: 20010101
  3. SEROQUEL [Suspect]
     Indication: BIPOLAR DISORDER
     Route: 048
     Dates: start: 19980101, end: 20010101
  4. SEROQUEL [Suspect]
     Route: 048
     Dates: start: 20000201, end: 20000601
  5. SEROQUEL [Suspect]
     Route: 048
     Dates: start: 20000201, end: 20000601
  6. SEROQUEL [Suspect]
     Route: 048
     Dates: start: 20000201, end: 20000601
  7. SEROQUEL [Suspect]
     Dosage: 200-350 MG
     Route: 048
     Dates: start: 20000214
  8. SEROQUEL [Suspect]
     Dosage: 200-350 MG
     Route: 048
     Dates: start: 20000214
  9. SEROQUEL [Suspect]
     Dosage: 200-350 MG
     Route: 048
     Dates: start: 20000214
  10. HALDOL [Concomitant]
     Dosage: Q AM AND HS
     Route: 048
     Dates: start: 20000709
  11. LITHIUM CARBONATE [Concomitant]
     Route: 048
     Dates: start: 19990501, end: 19991106
  12. RISPERDAL [Concomitant]
     Dosage: 2 MG BID, 4 MG HS
     Route: 048
     Dates: start: 19990501
  13. STELAZINE [Concomitant]
     Dosage: 5 MG AT 5 PM
     Route: 048
     Dates: start: 19990918, end: 20000305
  14. BENZTROPINE MESYLATE [Concomitant]
     Dosage: 1-2 MG
     Route: 048
     Dates: start: 20000214
  15. DEPAKOTE [Concomitant]
     Route: 048
     Dates: start: 20010918, end: 20011027

REACTIONS (3)
  - DIABETES MELLITUS [None]
  - DIABETES MELLITUS INADEQUATE CONTROL [None]
  - TYPE 2 DIABETES MELLITUS [None]
